FAERS Safety Report 5939695-X (Version None)
Quarter: 2008Q4

REPORT INFORMATION
  Report Type: 
  Country: None (occurrence: None)
  Receive Date: 20081030
  Receipt Date: 20081030
  Transmission Date: 20090506
  Serious: Yes (Death)
  Sender: FDA-Public Use
  Company Number: None

PATIENT
  Age: 45 Year
  Sex: Male
  Weight: 68.0396 kg

DRUGS (1)
  1. SEROQUEL [Suspect]

REACTIONS (4)
  - COMPLETED SUICIDE [None]
  - HOMICIDE [None]
  - PHARYNGEAL INJURY [None]
  - SKIN LACERATION [None]
